FAERS Safety Report 25942971 (Version 1)
Quarter: 2025Q4

REPORT INFORMATION
  Report Type: Other
  Country: GB (occurrence: GB)
  Receive Date: 20251021
  Receipt Date: 20251021
  Transmission Date: 20260118
  Serious: Yes (Other)
  Sender: GLENMARK
  Company Number: None

PATIENT
  Age: 47 Year
  Weight: 83 kg

DRUGS (3)
  1. OMEPRAZOLE [Suspect]
     Active Substance: OMEPRAZOLE
     Indication: Dyspepsia
     Dosage: 20 MILLIGRAM (INITIAL 20 MG BUT THEN INCREASED A DECADE LATER TO 40MG. HENCE THE ISSUES.)
     Route: 065
     Dates: start: 20140401
  2. OMEPRAZOLE [Suspect]
     Active Substance: OMEPRAZOLE
     Indication: Gastrooesophageal reflux disease
     Dosage: 40 MILLIGRAM
     Route: 065
     Dates: start: 202410, end: 20250802
  3. PROPRANOLOL HYDROCHLORIDE [Concomitant]
     Active Substance: PROPRANOLOL HYDROCHLORIDE
     Indication: Extrasystoles
     Dosage: UNK
     Route: 065
     Dates: start: 20160908

REACTIONS (4)
  - Mental disorder [Recovering/Resolving]
  - Post-traumatic stress disorder [Recovering/Resolving]
  - Condition aggravated [Recovering/Resolving]
  - Product communication issue [Unknown]

NARRATIVE: CASE EVENT DATE: 20241012
